FAERS Safety Report 8459050-0 (Version None)
Quarter: 2012Q2

REPORT INFORMATION
  Report Type: 
  Country: None (occurrence: None)
  Receive Date: 20120622
  Receipt Date: 20120611
  Transmission Date: 20120825
  Serious: Yes (Other)
  Sender: FDA-Public Use
  Company Number: US-FRI-1000031301

PATIENT
  Age: 69 Year
  Sex: Female
  Weight: 53 kg

DRUGS (1)
  1. VIIBRYD [Suspect]
     Indication: MAJOR DEPRESSION
     Dosage: 10 MG
     Route: 048
     Dates: start: 20120307, end: 20120307

REACTIONS (5)
  - ABDOMINAL PAIN [None]
  - HAEMORRHOIDS [None]
  - PROCTITIS ULCERATIVE [None]
  - DIARRHOEA [None]
  - DEFAECATION URGENCY [None]
